FAERS Safety Report 5287881-7 (Version None)
Quarter: 2007Q2

REPORT INFORMATION
  Report Type: 
  Country: None (occurrence: None)
  Receive Date: 20070405
  Receipt Date: 20070328
  Transmission Date: 20071010
  Serious: Yes (Hospitalization)
  Sender: FDA-Public Use
  Company Number: US-JNJFOC-20061106654

PATIENT
  Sex: Female
  Weight: 90.72 kg

DRUGS (3)
  1. ORTHO EVRA [Suspect]
     Indication: MENOMETRORRHAGIA
     Route: 062
  2. ALTACE [Concomitant]
     Indication: DRUG USE FOR UNKNOWN INDICATION
  3. PROTONIX [Concomitant]
     Indication: DRUG USE FOR UNKNOWN INDICATION

REACTIONS (3)
  - OFF LABEL USE [None]
  - PERIPHERAL ISCHAEMIA [None]
  - VENOUS THROMBOSIS [None]
